FAERS Safety Report 7921634 (Version 2)
Quarter: 2012Q4

REPORT INFORMATION
  Report Type: 
  Country: US (occurrence: US)
  Receive Date: 20110429
  Receipt Date: 20120919
  Transmission Date: 20130627
  Serious: No
  Sender: FDA-Public Use
  Company Number: US-ASTRAZENECA-2010SE46440

PATIENT
  Age: 72 Year
  Sex: Female

DRUGS (3)
  1. NEXIUM [Suspect]
     Route: 048
  2. TOPROL XL [Suspect]
     Route: 048
  3. SEROQUEL [Suspect]
     Route: 048

REACTIONS (6)
  - Hypertension [Unknown]
  - Emotional disorder [Unknown]
  - Hypotension [Unknown]
  - Malaise [Unknown]
  - Fungal infection [Unknown]
  - Drug dose omission [Unknown]
